FAERS Safety Report 15617366 (Version 1)
Quarter: 2018Q4

REPORT INFORMATION
  Report Type: Spontaneous
  Country: US (occurrence: US)
  Receive Date: 20181114
  Receipt Date: 20181114
  Transmission Date: 20190205
  Serious: Yes (Hospitalization, Other)
  Sender: FDA-Public Use
  Company Number: None

PATIENT
  Age: 80 Year
  Sex: Female
  Weight: 69.75 kg

DRUGS (14)
  1. ASPIRIN. [Concomitant]
     Active Substance: ASPIRIN
  2. PRILOSEC [Concomitant]
     Active Substance: OMEPRAZOLE MAGNESIUM
  3. ATORVASTATIN [Concomitant]
     Active Substance: ATORVASTATIN
  4. METHOTREXATE. [Concomitant]
     Active Substance: METHOTREXATE
  5. COLACE [Concomitant]
     Active Substance: DOCUSATE SODIUM
  6. FERROUS FUMURATE [Concomitant]
  7. COUMADIN [Concomitant]
     Active Substance: WARFARIN SODIUM
  8. SENNA S [Concomitant]
     Active Substance: DOCUSATE SODIUM\SENNA LEAF
  9. FOLIC ACID. [Concomitant]
     Active Substance: FOLIC ACID
  10. BRAFTOVI [Suspect]
     Active Substance: ENCORAFENIB
     Indication: MALIGNANT MELANOMA
     Route: 048
     Dates: start: 20181017
  11. LISINOPRIL. [Concomitant]
     Active Substance: LISINOPRIL
  12. VITAMIN B1 [Concomitant]
     Active Substance: THIAMINE HYDROCHLORIDE
  13. MEKTOVI [Suspect]
     Active Substance: BINIMETINIB
     Indication: MALIGNANT MELANOMA
     Route: 048
     Dates: start: 20181017
  14. KEPPRA [Concomitant]
     Active Substance: LEVETIRACETAM

REACTIONS (1)
  - Rectal haemorrhage [None]
